FAERS Safety Report 16661635 (Version 2)
Quarter: 2019Q3

REPORT INFORMATION
  Report Type: Report from Study
  Country: US (occurrence: US)
  Receive Date: 20190802
  Receipt Date: 20190806
  Transmission Date: 20191004
  Serious: Yes (Hospitalization)
  Sender: FDA-Public Use
  Company Number: US-ACTELION-A-US2019-193785

PATIENT
  Age: 76 Year
  Sex: Female

DRUGS (10)
  1. OPSUMIT [Suspect]
     Active Substance: MACITENTAN
     Indication: PULMONARY ARTERIAL HYPERTENSION
     Dosage: 10 MG, QD
     Route: 048
     Dates: start: 201904, end: 201906
  2. MIDODRINE [Concomitant]
     Active Substance: MIDODRINE
  3. SEVELAMER [Concomitant]
     Active Substance: SEVELAMER
  4. TORSEMIDE. [Concomitant]
     Active Substance: TORSEMIDE
  5. DIGOX [Concomitant]
     Active Substance: DIGOXIN
  6. ADCIRCA [Suspect]
     Active Substance: TADALAFIL
     Indication: PULMONARY HYPERTENSION
     Dosage: 20 MG, QAM
     Route: 048
     Dates: start: 20190209
  7. BUMETANIDE. [Concomitant]
     Active Substance: BUMETANIDE
  8. SILDENAFIL. [Concomitant]
     Active Substance: SILDENAFIL
  9. METOLAZONE. [Concomitant]
     Active Substance: METOLAZONE
  10. JANUVIA [Concomitant]
     Active Substance: SITAGLIPTIN PHOSPHATE

REACTIONS (4)
  - Rehabilitation therapy [Unknown]
  - Gastrointestinal disorder [Unknown]
  - Condition aggravated [Unknown]
  - Fluid retention [Not Recovered/Not Resolved]

NARRATIVE: CASE EVENT DATE: 201906
